FAERS Safety Report 14544780 (Version 1)
Quarter: 2018Q1

REPORT INFORMATION
  Report Type: Spontaneous
  Country: DK (occurrence: DK)
  Receive Date: 20180217
  Receipt Date: 20180217
  Transmission Date: 20180509
  Serious: Yes (Other)
  Sender: FDA-Public Use
  Company Number: DK-AUROBINDO-AUR-APL-2018-007701

PATIENT
  Age: 72 Year
  Sex: Female

DRUGS (1)
  1. PRAMIPEXOLE AUROBINDO TABLET [Suspect]
     Active Substance: PRAMIPEXOLE
     Indication: RESTLESS LEGS SYNDROME
     Dosage: STYRKE: 0,35 MG. DOSIS: 0,5 TABLET MORGEN + 1 TABLET AFTEN. ()
     Route: 048
     Dates: start: 2008

REACTIONS (3)
  - Blood iron decreased [Not Recovered/Not Resolved]
  - Anaemia [Not Recovered/Not Resolved]
  - Transfusion [Recovered/Resolved]

NARRATIVE: CASE EVENT DATE: 2017
